FAERS Safety Report 14234902 (Version 1)
Quarter: 2017Q4

REPORT INFORMATION
  Report Type: Report from Study
  Country: AR (occurrence: AR)
  Receive Date: 20171129
  Receipt Date: 20171129
  Transmission Date: 20180321
  Serious: Yes (Other)
  Sender: FDA-Public Use
  Company Number: PHHY2017AR166289

PATIENT
  Age: 58 Year
  Sex: Female

DRUGS (5)
  1. COSENTYX [Suspect]
     Active Substance: SECUKINUMAB
     Dosage: 150 MG, EVERY 15 DAYS
     Route: 065
     Dates: start: 20170830, end: 20171006
  2. DILATREND [Concomitant]
     Active Substance: CARVEDILOL
     Indication: ARRHYTHMIA
     Dosage: 12.5 OT, UNK
     Route: 065
  3. TENSIUM [Concomitant]
     Indication: PRODUCT USED FOR UNKNOWN INDICATION
     Route: 065
  4. COSENTYX [Suspect]
     Active Substance: SECUKINUMAB
     Dosage: 150 MG, EVERY 15 DAYS
     Route: 065
     Dates: start: 20171102
  5. COSENTYX [Suspect]
     Active Substance: SECUKINUMAB
     Indication: PSORIATIC ARTHROPATHY
     Dosage: UNK
     Route: 065
     Dates: start: 20170802, end: 20170830

REACTIONS (10)
  - Oropharyngeal pain [Unknown]
  - Tongue discolouration [Unknown]
  - Fungal pharyngitis [Recovered/Resolved]
  - Dysphagia [Unknown]
  - Pyrexia [Unknown]
  - Red blood cell count increased [Unknown]
  - Urinary tract infection [Recovering/Resolving]
  - Drug prescribing error [Not Recovered/Not Resolved]
  - Blood test abnormal [Unknown]
  - Hypersensitivity [Unknown]

NARRATIVE: CASE EVENT DATE: 20170830
